FAERS Safety Report 4308509-6 (Version None)
Quarter: 2004Q1

REPORT INFORMATION
  Report Type: 
  Country: None (occurrence: None)
  Receive Date: 20040301
  Receipt Date: 20031208
  Transmission Date: 20041129
  Serious: Yes (Death, Life-Threatening)
  Sender: FDA-Public Use
  Company Number: PHEH2003US11256

PATIENT
  Age: 74 Year
  Sex: Male

DRUGS (14)
  1. ZOMETA [Suspect]
     Indication: MULTIPLE MYELOMA
     Dosage: 4 MG, ONCE/SINGLE
     Route: 042
     Dates: start: 20030918
  2. OXYGEN [Concomitant]
     Indication: CHRONIC OBSTRUCTIVE AIRWAYS DISEASE
     Dosage: UNK, CONT
  3. ADVAIR DISKUS 100/50 [Concomitant]
     Indication: CHRONIC OBSTRUCTIVE AIRWAYS DISEASE
     Dosage: UNK, BID
  4. ALLEGRA [Concomitant]
     Indication: CHRONIC OBSTRUCTIVE AIRWAYS DISEASE
     Dosage: 180 UNK, QD
  5. LEVAQUIN [Concomitant]
     Indication: CHRONIC OBSTRUCTIVE AIRWAYS DISEASE
  6. PEN-VEE K [Concomitant]
     Indication: CHRONIC OBSTRUCTIVE AIRWAYS DISEASE
  7. AZITHROMYCIN [Concomitant]
     Indication: CHRONIC OBSTRUCTIVE AIRWAYS DISEASE
  8. ACETYLSALICYLIC ACID [Concomitant]
     Indication: CORONARY ARTERY DISEASE
     Dosage: 81 MG, QD
  9. WARFARIN [Concomitant]
     Indication: ATRIAL FIBRILLATION
     Dosage: 2 MG, QD
  10. ALDACTONE [Concomitant]
  11. METOLAZONE [Concomitant]
  12. CARDIZEM [Concomitant]
  13. SIMVASTATIN [Concomitant]
  14. TAMSULOSIN HYDROCHLORIDE [Concomitant]

REACTIONS (6)
  - ARRHYTHMIA [None]
  - BLOOD CREATININE INCREASED [None]
  - BLOOD UREA INCREASED [None]
  - FEELING ABNORMAL [None]
  - HAEMODIALYSIS [None]
  - RENAL FAILURE [None]
